FAERS Safety Report 8806689 (Version 2)
Quarter: 2012Q4

REPORT INFORMATION
  Report Type: Spontaneous
  Country: DE (occurrence: None)
  Receive Date: 20120919
  Receipt Date: 20121011
  Transmission Date: 20130627
  Serious: Yes (Hospitalization)
  Sender: FDA-Public Use
  Company Number: FK201202667

PATIENT
  Age: 60 Year
  Sex: Female
  Weight: 72 kg

DRUGS (3)
  1. PACLITAXEL [Suspect]
     Indication: OVARIAN CANCER
     Dates: start: 20120109, end: 20120130
  2. PACLITAXEL [Suspect]
     Indication: OVARIAN CANCER
     Dates: start: 20120227, end: 20120319
  3. CARBOPLATIN (CARBOPLATIN) [Concomitant]

REACTIONS (8)
  - Pain in extremity [None]
  - Neuropathy peripheral [None]
  - Diarrhoea [None]
  - Nausea [None]
  - Vomiting [None]
  - Cystitis [None]
  - Bone pain [None]
  - Thrombosis [None]
